FAERS Safety Report 21722764 (Version 2)
Quarter: 2023Q1

REPORT INFORMATION
  Report Type: Spontaneous
  Country: US (occurrence: US)
  Receive Date: 20221213
  Receipt Date: 20230117
  Transmission Date: 20230417
  Serious: Yes (Other)
  Sender: FDA-Public Use
  Company Number: US-PFM-2022-08568

PATIENT
  Sex: Female
  Weight: 6.617 kg

DRUGS (2)
  1. HEMANGEOL [Suspect]
     Active Substance: PROPRANOLOL HYDROCHLORIDE
     Indication: Haemangioma
     Dosage: 2.6 ML, BID (2/DAY)
     Route: 048
  2. HEMANGEOL [Suspect]
     Active Substance: PROPRANOLOL HYDROCHLORIDE
     Dosage: 3 ML, BID (2/DAY)
     Route: 048

REACTIONS (5)
  - Pulmonary congestion [Unknown]
  - Pyrexia [Unknown]
  - Cough [Unknown]
  - Nasal congestion [Unknown]
  - Irritability [Unknown]
